FAERS Safety Report 4333680-X (Version None)
Quarter: 2004Q2

REPORT INFORMATION
  Report Type: 
  Country: None (occurrence: None)
  Receive Date: 20040402
  Receipt Date: 20040323
  Transmission Date: 20050107
  Serious: Yes (Disabling, Other)
  Sender: FDA-Public Use
  Company Number: 2004014928

PATIENT
  Sex: Female

DRUGS (1)
  1. LIPITOR [Suspect]
     Indication: BLOOD CHOLESTEROL INCREASED
     Dosage: 10 MG, DAILY, ORAL
     Route: 048

REACTIONS (13)
  - ABASIA [None]
  - DISCOMFORT [None]
  - DYSSTASIA [None]
  - FATIGUE [None]
  - FIBROMYALGIA [None]
  - INJURY [None]
  - INSOMNIA [None]
  - MUSCLE INJURY [None]
  - MUSCULAR WEAKNESS [None]
  - MYALGIA [None]
  - PAIN IN EXTREMITY [None]
  - SPINAL DISORDER [None]
  - SUICIDAL IDEATION [None]
